FAERS Safety Report 13571080 (Version 1)
Quarter: 2017Q2

REPORT INFORMATION
  Report Type: Spontaneous
  Country: US (occurrence: US)
  Receive Date: 20170522
  Receipt Date: 20170522
  Transmission Date: 20170830
  Serious: Yes (Other)
  Sender: FDA-Public Use
  Company Number: None

PATIENT
  Age: 69 Year
  Sex: Female
  Weight: 87.3 kg

DRUGS (18)
  1. CLONAZEPAM. [Suspect]
     Active Substance: CLONAZEPAM
     Indication: ANXIETY
     Dosage: ?          QUANTITY:2 TABLET(S);?
     Route: 048
  2. MULTI VITAMIN [Concomitant]
     Active Substance: VITAMINS
  3. DURAGESIC [Concomitant]
     Active Substance: FENTANYL
  4. POTASSIUM [Concomitant]
     Active Substance: POTASSIUM
  5. AMBIEN CR [Concomitant]
     Active Substance: ZOLPIDEM TARTRATE
  6. FENTANYL. [Suspect]
     Active Substance: FENTANYL
     Indication: INJURY
     Dosage: QUANTITY:1 PATCH(ES);OTHER FREQUENCY:EVERY 3 DAYS;?
     Route: 062
  7. FENTANYL. [Suspect]
     Active Substance: FENTANYL
     Indication: ANALGESIC THERAPY
     Dosage: QUANTITY:1 PATCH(ES);OTHER FREQUENCY:EVERY 3 DAYS;?
     Route: 062
  8. VITAMIN D [Concomitant]
     Active Substance: CHOLECALCIFEROL
  9. ENABLEX [Concomitant]
     Active Substance: DARIFENACIN HYDROBROMIDE
  10. LEXAPRO [Concomitant]
     Active Substance: ESCITALOPRAM OXALATE
  11. LASIX [Concomitant]
     Active Substance: FUROSEMIDE
  12. NORPRO [Concomitant]
  13. WELLBUTRIN [Concomitant]
     Active Substance: BUPROPION HYDROCHLORIDE
  14. CARAFATE [Concomitant]
     Active Substance: SUCRALFATE
  15. LISINOPRIL. [Concomitant]
     Active Substance: LISINOPRIL
  16. KLONOPIN [Concomitant]
     Active Substance: CLONAZEPAM
  17. VITAMIN C [Concomitant]
     Active Substance: ASCORBIC ACID
  18. CALCIUM [Concomitant]
     Active Substance: CALCIUM

REACTIONS (3)
  - Liver disorder [None]
  - Renal disorder [None]
  - Rash [None]

NARRATIVE: CASE EVENT DATE: 20020830
